FAERS Safety Report 5063528-X (Version None)
Quarter: 2006Q3

REPORT INFORMATION
  Report Type: 
  Country: None (occurrence: None)
  Receive Date: 20060727
  Receipt Date: 20060615
  Transmission Date: 20061208
  Serious: Yes (Hospitalization)
  Sender: FDA-Public Use
  Company Number: US-AVENTIS-200615282US

PATIENT
  Sex: Female

DRUGS (4)
  1. LANTUS [Suspect]
     Dosage: DOSE: 70 U
  2. OPTICLIK (INSULIN INJECTION PEN) [Suspect]
  3. OPTICLIK (INSULIN INJECTION PEN) [Suspect]
  4. RAPID ACTING INSULIN [Concomitant]
     Dosage: DOSE: UNK

REACTIONS (3)
  - INCORRECT DOSE ADMINISTERED [None]
  - KETOSIS [None]
  - PHARMACEUTICAL PRODUCT COMPLAINT [None]
